FAERS Safety Report 6249059-X (Version None)
Quarter: 2009Q2

REPORT INFORMATION
  Report Type: 
  Country: None (occurrence: None)
  Receive Date: 20090629
  Receipt Date: 20090617
  Transmission Date: 20091009
  Serious: Yes (Hospitalization)
  Sender: FDA-Public Use
  Company Number: FR-AVENTIS-200912282FR

PATIENT
  Age: 54 Year
  Sex: Male

DRUGS (10)
  1. LANTUS [Suspect]
     Indication: INSULIN-REQUIRING TYPE 2 DIABETES MELLITUS
     Route: 058
     Dates: start: 20090401
  2. ANTI-SMOKING AGENTS [Suspect]
     Route: 048
     Dates: start: 20090429, end: 20090504
  3. ANTI-SMOKING AGENTS [Suspect]
     Route: 048
     Dates: start: 20090505, end: 20090515
  4. PLAVIX [Concomitant]
     Route: 048
  5. KARDEGIC                           /00002703/ [Concomitant]
     Route: 048
  6. BISOPROLOL NOS [Concomitant]
     Indication: DRUG USE FOR UNKNOWN INDICATION
     Route: 048
  7. PRAVASTATINE SODIQUE [Concomitant]
     Route: 048
  8. PANTOPRAZOLE SODIUM [Concomitant]
     Route: 048
  9. METFORMIN HCL [Concomitant]
     Indication: TYPE 2 DIABETES MELLITUS
     Route: 048
  10. GLUCOR [Concomitant]
     Indication: TYPE 2 DIABETES MELLITUS
     Route: 048

REACTIONS (3)
  - DYSPNOEA AT REST [None]
  - OEDEMA [None]
  - OEDEMA PERIPHERAL [None]
